FAERS Safety Report 6382882-X (Version None)
Quarter: 2009Q3

REPORT INFORMATION
  Report Type: 
  Country: None (occurrence: None)
  Receive Date: 20090930
  Receipt Date: 20090918
  Transmission Date: 20100115
  Serious: Yes (Other)
  Sender: FDA-Public Use
  Company Number: US-JNJCH-2009025286

PATIENT
  Age: 8 Year
  Sex: Female
  Weight: 34 kg

DRUGS (2)
  1. CHILDREN'S BENADRYL ALLERGY CHERRY LIQUID [Suspect]
     Indication: NASOPHARYNGITIS
     Dosage: TEXT:1 TEASPOONFUL
     Route: 048
     Dates: start: 20090912, end: 20090917
  2. DELSYM [Suspect]
     Indication: DRUG USE FOR UNKNOWN INDICATION
     Dosage: TEXT:UNKNOWN
     Route: 065

REACTIONS (2)
  - DIPLOPIA [None]
  - EYE ROLLING [None]
